FAERS Safety Report 6704432-8 (Version None)
Quarter: 2010Q2

REPORT INFORMATION
  Report Type: 
  Country: None (occurrence: None)
  Receive Date: 20100423
  Receipt Date: 20100209
  Transmission Date: 20101027
  Serious: No
  Sender: FDA-Public Use
  Company Number: ALL1-2010-00715

PATIENT
  Age: 25 Year
  Sex: Male
  Weight: 73.9 kg

DRUGS (2)
  1. VYVANSE [Suspect]
     Indication: ATTENTION DEFICIT/HYPERACTIVITY DISORDER
     Dosage: 60 MG, 1X/DAY:QD, ORAL
     Route: 048
     Dates: start: 20091001
  2. ZOLOFT /01011401/ (SERTRALINE) TABLET [Concomitant]

REACTIONS (4)
  - CONFUSIONAL STATE [None]
  - DISTURBANCE IN ATTENTION [None]
  - FEAR OF DEATH [None]
  - IRRITABILITY [None]
